FAERS Safety Report 4378295-2 (Version None)
Quarter: 2004Q2

REPORT INFORMATION
  Report Type: 
  Country: None (occurrence: None)
  Receive Date: 20040609
  Receipt Date: 20040525
  Transmission Date: 20050107
  Serious: Yes (Other)
  Sender: FDA-Public Use
  Company Number: US_0405103316

PATIENT
  Age: 15 Year
  Sex: Male

DRUGS (2)
  1. SOMATROPIN [Suspect]
     Indication: GROWTH HORMONE DEFICIENCY
     Dosage: 0.24 MG/KG WEEK
  2. DESMOPRESSIN ACETATE [Concomitant]

REACTIONS (5)
  - BURKITT'S LYMPHOMA [None]
  - DELAYED PUBERTY [None]
  - HYPOPITUITARISM [None]
  - HYPOTHYROIDISM [None]
  - SECONDARY HYPOGONADISM [None]
